FAERS Safety Report 6811814-2 (Version None)
Quarter: 2010Q2

REPORT INFORMATION
  Report Type: 
  Country: None (occurrence: None)
  Receive Date: 20100628
  Receipt Date: 20100615
  Transmission Date: 20101027
  Serious: Yes (Hospitalization, Other)
  Sender: FDA-Public Use
  Company Number: LEO-2010-00155

PATIENT
  Sex: Female
  Weight: 2.74 kg

DRUGS (8)
  1. INNOHEL (TINZAPARIN SODIUM) [Suspect]
     Indication: DRUG EXPOSURE DURING PREGNANCY
     Dosage: TRANSPLACENTAL
     Route: 064
     Dates: start: 20060329, end: 20060625
  2. BECITUDE (BECLOMETASONE DIPROPIONATE) [Concomitant]
  3. VENTOLIN [Concomitant]
  4. PROPYLTHIOURACIL [Concomitant]
  5. DIGOXIN [Concomitant]
  6. SYNTOMETRINE (OXYTOCIN, ERGOMETRINE) [Concomitant]
  7. ERGOMETRINE (ERGOMETRINE) [Concomitant]
  8. SYNTOCINON [Concomitant]

REACTIONS (4)
  - HYPOGLYCAEMIA NEONATAL [None]
  - JAUNDICE NEONATAL [None]
  - MATERNAL DRUGS AFFECTING FOETUS [None]
  - PREMATURE LABOUR [None]
